FAERS Safety Report 13590019 (Version 1)
Quarter: 2017Q2

REPORT INFORMATION
  Report Type: Spontaneous
  Country: US (occurrence: US)
  Receive Date: 20170528
  Receipt Date: 20170528
  Transmission Date: 20170830
  Serious: Yes (Hospitalization)
  Sender: FDA-Public Use
  Company Number: None

PATIENT
  Age: 31 Year
  Sex: Female
  Weight: 43.3 kg

DRUGS (3)
  1. NORCO [Concomitant]
     Active Substance: ACETAMINOPHEN\HYDROCODONE BITARTRATE
  2. DIAZEPAM. [Concomitant]
     Active Substance: DIAZEPAM
  3. MYOBLOC [Suspect]
     Active Substance: RIMABOTULINUMTOXINB
     Indication: DYSTONIA
     Dates: start: 20170509, end: 20170509

REACTIONS (5)
  - Dysphagia [None]
  - Dyspnoea [None]
  - Constipation [None]
  - Dry mouth [None]
  - Vision blurred [None]

NARRATIVE: CASE EVENT DATE: 20170519
